FAERS Safety Report 7396411-5 (Version None)
Quarter: 2011Q1

REPORT INFORMATION
  Report Type: 
  Country: None (occurrence: None)
  Receive Date: 20110331
  Receipt Date: 20110331
  Transmission Date: 20110831
  Serious: Yes (Hospitalization)
  Sender: FDA-Public Use
  Company Number: None

PATIENT
  Age: 58 Year
  Sex: Male
  Weight: 87.3 kg

DRUGS (1)
  1. DEXILANT [Suspect]
     Indication: GASTROOESOPHAGEAL REFLUX DISEASE
     Dosage: 60 MGS DAILY MOUTH
     Route: 048
     Dates: start: 20110217, end: 20110307

REACTIONS (7)
  - SWELLING FACE [None]
  - LIP SWELLING [None]
  - DYSPNOEA [None]
  - URTICARIA [None]
  - VISION BLURRED [None]
  - PYREXIA [None]
  - DYSURIA [None]
